FAERS Safety Report 5379739-X (Version None)
Quarter: 2007Q3

REPORT INFORMATION
  Report Type: 
  Country: None (occurrence: None)
  Receive Date: 20070706
  Receipt Date: 20070629
  Transmission Date: 20080115
  Serious: Yes (Hospitalization, Other)
  Sender: FDA-Public Use
  Company Number: PHBS2007JP10650

PATIENT
  Age: 23 Year
  Sex: Female
  Weight: 47 kg

DRUGS (3)
  1. VOLTAREN [Suspect]
     Indication: FLANK PAIN
     Dosage: 25 MG/DAY
     Route: 048
     Dates: start: 20070531, end: 20070531
  2. STROCAIN [Suspect]
     Indication: FLANK PAIN
     Dosage: UNK, UNK
     Route: 048
     Dates: start: 20070601, end: 20070601
  3. MARZULENE [Suspect]
     Indication: NAUSEA
     Dosage: UNK, UNK
     Route: 048
     Dates: start: 20070601, end: 20070601

REACTIONS (13)
  - ALANINE AMINOTRANSFERASE INCREASED [None]
  - ASPARTATE AMINOTRANSFERASE INCREASED [None]
  - BIOPSY LIVER ABNORMAL [None]
  - BLOOD ALKALINE PHOSPHATASE INCREASED [None]
  - BLOOD BILIRUBIN INCREASED [None]
  - BLOOD LACTATE DEHYDROGENASE INCREASED [None]
  - DISCOMFORT [None]
  - GAMMA-GLUTAMYLTRANSFERASE INCREASED [None]
  - HEPATITIS C [None]
  - HEPATITIS C ANTIBODY POSITIVE [None]
  - LIVER DISORDER [None]
  - MALAISE [None]
  - NAUSEA [None]
